FAERS Safety Report 5635463-7 (Version None)
Quarter: 2008Q1

REPORT INFORMATION
  Report Type: 
  Country: None (occurrence: None)
  Receive Date: 20080222
  Receipt Date: 20080211
  Transmission Date: 20080703
  Serious: Yes (Other)
  Sender: FDA-Public Use
  Company Number: GB-PFIZER INC-2008014136

PATIENT

DRUGS (1)
  1. GABAPENTIN [Suspect]

REACTIONS (1)
  - INFERTILITY [None]
